FAERS Safety Report 12746190 (Version 1)
Quarter: 2016Q3

REPORT INFORMATION
  Report Type: Spontaneous
  Country: CN (occurrence: CN)
  Receive Date: 20160915
  Receipt Date: 20160915
  Transmission Date: 20161109
  Serious: Yes (Hospitalization)
  Sender: FDA-Public Use
  Company Number: CN-PFIZER INC-2016431199

PATIENT
  Age: 60 Year
  Sex: Female
  Weight: 50 kg

DRUGS (3)
  1. METHYCOBAL [Suspect]
     Active Substance: METHYLCOBALAMIN
     Indication: BACK PAIN
     Dosage: 0.5 G, 3X/DAY
     Route: 048
     Dates: start: 20160423, end: 20160426
  2. CELEBREX [Suspect]
     Active Substance: CELECOXIB
     Indication: BACK PAIN
     Dosage: 200 MG, 2X/DAY
     Route: 048
     Dates: start: 20160423, end: 20160426
  3. TYLENOL /00435101/ [Suspect]
     Active Substance: ACETAMINOPHEN\DIPHENHYDRAMINE HYDROCHLORIDE

REACTIONS (5)
  - Dermatitis atopic [Recovering/Resolving]
  - Drug eruption [Recovering/Resolving]
  - Peripheral swelling [Recovered/Resolved]
  - Rash pruritic [Recovering/Resolving]
  - Rash erythematous [Recovering/Resolving]

NARRATIVE: CASE EVENT DATE: 20160424
